FAERS Safety Report 5026685-7 (Version None)
Quarter: 2006Q2

REPORT INFORMATION
  Report Type: 
  Country: None (occurrence: None)
  Receive Date: 20060608
  Receipt Date: 20060529
  Transmission Date: 20061013
  Serious: Yes (Death)
  Sender: FDA-Public Use
  Company Number: 2006-DE-02292GD

PATIENT
  Age: 38 Year
  Sex: Female

DRUGS (5)
  1. PREDNISONE TAB [Suspect]
     Indication: SYSTEMIC LUPUS ERYTHEMATOSUS
     Dosage: 15 MG, PO
     Route: 048
  2. METHOTREXATE [Suspect]
     Indication: SYSTEMIC LUPUS ERYTHEMATOSUS
     Dates: start: 19920101, end: 19940101
  3. CYCLOPHOSPHAMIDE [Suspect]
     Indication: SYSTEMIC LUPUS ERYTHEMATOSUS
     Dosage: (6 INFUSIONS)
     Dates: start: 19930101
  4. CYCLOSPORINE [Suspect]
     Indication: SYSTEMIC LUPUS ERYTHEMATOSUS
     Dates: start: 19940101, end: 20020101
  5. CHLOROQUINE (CHLOROQUINE) [Concomitant]

REACTIONS (7)
  - BLOOD LACTATE DEHYDROGENASE INCREASED [None]
  - BURKITT'S LYMPHOMA [None]
  - CSF PROTEIN INCREASED [None]
  - FACIAL PALSY [None]
  - HYPOAESTHESIA [None]
  - NEUROPATHY PERIPHERAL [None]
  - TRIGEMINAL NERVE DISORDER [None]
